FAERS Safety Report 7225638-8 (Version None)
Quarter: 2011Q1

REPORT INFORMATION
  Report Type: 
  Country: None (occurrence: None)
  Receive Date: 20110113
  Receipt Date: 20110104
  Transmission Date: 20110831
  Serious: Yes (Other)
  Sender: FDA-Public Use
  Company Number: US-ELI_LILLY_AND_COMPANY-US201001005931

PATIENT
  Sex: Female

DRUGS (1)
  1. FORTEO [Suspect]
     Indication: OSTEOPOROSIS
     Dosage: 20 UG, DAILY (1/D)
     Route: 065
     Dates: start: 20090908

REACTIONS (9)
  - POSTURE ABNORMAL [None]
  - PARKINSON'S DISEASE [None]
  - ASTHENIA [None]
  - INSOMNIA [None]
  - FATIGUE [None]
  - BACK PAIN [None]
  - DYSPNOEA [None]
  - ANGER [None]
  - HYPERSOMNIA [None]
